FAERS Safety Report 7094347-0 (Version None)
Quarter: 2010Q4

REPORT INFORMATION
  Report Type: 
  Country: None (occurrence: None)
  Receive Date: 20101102
  Receipt Date: 20101018
  Transmission Date: 20110411
  Serious: Yes (Hospitalization)
  Sender: FDA-Public Use
  Company Number: DSA_44159_2010

PATIENT
  Age: 28 Year
  Sex: Female

DRUGS (2)
  1. BUPROPION HCL [Suspect]
     Indication: MAJOR DEPRESSION
     Dosage: (150 MG QD ORAL) ; (300 MG QD ORAL)
     Route: 048
  2. ALPRAZOLAM [Concomitant]

REACTIONS (3)
  - DELIRIUM [None]
  - HALLUCINATION, VISUAL [None]
  - PSYCHOMOTOR RETARDATION [None]
